FAERS Safety Report 4677280-0 (Version None)
Quarter: 2005Q2

REPORT INFORMATION
  Report Type: 
  Country: None (occurrence: None)
  Receive Date: 20050526
  Receipt Date: 20050512
  Transmission Date: 20051028
  Serious: Yes (Other)
  Sender: FDA-Public Use
  Company Number: 1515-094

PATIENT

DRUGS (2)
  1. IRON SUCROSE INJECTABLE 20MG/ML 5ML AMPULE [Suspect]
     Dosage: 100MG IN 100ML NS IV
     Route: 042
  2. VIFOR (INTERNAT'L)INC. [Suspect]

REACTIONS (1)
  - ANGIONEUROTIC OEDEMA [None]
